FAERS Safety Report 7206898-6 (Version None)
Quarter: 2010Q4

REPORT INFORMATION
  Report Type: 
  Country: None (occurrence: None)
  Receive Date: 20101230
  Receipt Date: 20101230
  Transmission Date: 20110411
  Serious: No
  Sender: FDA-Public Use
  Company Number: None

PATIENT
  Age: 61 Year
  Sex: Male
  Weight: 100 kg

DRUGS (1)
  1. NIACIN [Suspect]
     Indication: HYPERLIPIDAEMIA
     Dosage: 1000 MG BID PO
     Route: 048
     Dates: start: 20100402, end: 20100403

REACTIONS (4)
  - DYSPNOEA [None]
  - FLUSHING [None]
  - PRURITUS [None]
  - RASH [None]
